FAERS Safety Report 6523037-5 (Version None)
Quarter: 2009Q4

REPORT INFORMATION
  Report Type: 
  Country: None (occurrence: None)
  Receive Date: 20091230
  Receipt Date: 20091112
  Transmission Date: 20100525
  Serious: Yes (Death, Hospitalization)
  Sender: FDA-Public Use
  Company Number: PT-MERCK-0911PRT00005

PATIENT
  Age: 21 Year
  Sex: Female

DRUGS (3)
  1. INDINAVIR SULFATE [Suspect]
     Indication: HIV INFECTION
     Route: 065
     Dates: start: 19961101
  2. DIDANOSINE [Concomitant]
     Route: 065
     Dates: start: 19961101
  3. ZIDOVUDINE [Concomitant]
     Route: 065
     Dates: start: 19961101

REACTIONS (5)
  - DEATH [None]
  - DIARRHOEA [None]
  - NEUROPATHY PERIPHERAL [None]
  - ORAL CANDIDIASIS [None]
  - PYREXIA [None]
